FAERS Safety Report 10168800 (Version 1)
Quarter: 2014Q2

REPORT INFORMATION
  Report Type: Spontaneous
  Country: US (occurrence: None)
  Receive Date: 20140512
  Receipt Date: 20140512
  Transmission Date: 20141212
  Serious: Yes (Other)
  Sender: FDA-Public Use
  Company Number: None

PATIENT
  Age: 74 Year
  Sex: Male
  Weight: 118.39 kg

DRUGS (1)
  1. PROPRANOLOL [Suspect]
     Indication: TREMOR
     Dosage: 80 MG  1 QHS
     Dates: start: 20140507

REACTIONS (2)
  - Depression [None]
  - Suicidal ideation [None]
